FAERS Safety Report 4819020-8 (Version None)
Quarter: 2005Q4

REPORT INFORMATION
  Report Type: 
  Country: None (occurrence: None)
  Receive Date: 20051101
  Receipt Date: 20051020
  Transmission Date: 20060501
  Serious: Yes (Hospitalization)
  Sender: FDA-Public Use
  Company Number: 2005146475

PATIENT
  Age: 42 Year
  Sex: Female
  Weight: 50 kg

DRUGS (2)
  1. IRINOTECAN HCL [Suspect]
     Indication: CERVIX CARCINOMA
     Dosage: 160 MG/M2, INTRAVENOUS
     Route: 042
     Dates: start: 20051014, end: 20051014
  2. CISPLATIN [Concomitant]

REACTIONS (1)
  - EPILEPSY [None]
